FAERS Safety Report 5507963-1 (Version None)
Quarter: 2007Q4

REPORT INFORMATION
  Report Type: 
  Country: None (occurrence: None)
  Receive Date: 20071106
  Receipt Date: 20071026
  Transmission Date: 20080405
  Serious: Yes (Other)
  Sender: FDA-Public Use
  Company Number: JP-JNJFOC-20071007335

PATIENT
  Age: 37 Year
  Sex: Female

DRUGS (1)
  1. ORTHO-NOVUM 1/35-21 [Suspect]
     Indication: DRUG USE FOR UNKNOWN INDICATION

REACTIONS (3)
  - HEADACHE [None]
  - MOOD ALTERED [None]
  - VISUAL DISTURBANCE [None]
